FAERS Safety Report 5799450-0 (Version None)
Quarter: 2008Q3

REPORT INFORMATION
  Report Type: 
  Country: None (occurrence: None)
  Receive Date: 20080701
  Receipt Date: 20080701
  Transmission Date: 20090109
  Serious: Yes (Hospitalization)
  Sender: FDA-Public Use
  Company Number: None

PATIENT
  Age: 79 Year
  Sex: Male

DRUGS (3)
  1. NITROFURANTOIN [Suspect]
     Indication: PROPHYLAXIS
     Dosage: 100 MG EVERY DAY PO
     Route: 048
     Dates: start: 20080507, end: 20080606
  2. NITROFURANTOIN [Suspect]
     Indication: URINARY TRACT DISORDER
     Dosage: 100 MG EVERY DAY PO
     Route: 048
     Dates: start: 20080507, end: 20080606
  3. CEPHALEXIN [Suspect]
     Indication: KLEBSIELLA BACTERAEMIA
     Dosage: 500 MG TID PO
     Route: 048
     Dates: start: 20080611, end: 20080621

REACTIONS (2)
  - CLOSTRIDIAL INFECTION [None]
  - DIARRHOEA [None]
